FAERS Safety Report 10044728 (Version 2)
Quarter: 2020Q3

REPORT INFORMATION
  Report Type: Spontaneous
  Country: PT (occurrence: PT)
  Receive Date: 20140328
  Receipt Date: 20200819
  Transmission Date: 20201102
  Serious: Yes (Other)
  Sender: FDA-Public Use
  Company Number: PT-ASTRAZENECA-2014SE19779

PATIENT
  Age: 25 Year
  Sex: Female

DRUGS (3)
  1. BUDESONIDE. [Suspect]
     Active Substance: BUDESONIDE
     Route: 055
  2. BECLOMETHASONE [Concomitant]
     Active Substance: BECLOMETHASONE
     Route: 055
  3. FLUTICASONE. [Suspect]
     Active Substance: FLUTICASONE
     Route: 055

REACTIONS (4)
  - Drug hypersensitivity [Not Recovered/Not Resolved]
  - Forced expiratory volume decreased [Unknown]
  - Dyspnoea [Unknown]
  - Allergy test positive [Unknown]
